FAERS Safety Report 4747777-3 (Version None)
Quarter: 2005Q3

REPORT INFORMATION
  Report Type: 
  Country: None (occurrence: None)
  Receive Date: 20050816
  Receipt Date: 20050803
  Transmission Date: 20060218
  Serious: Yes (Other)
  Sender: FDA-Public Use
  Company Number: 2005105343

PATIENT
  Age: 56 Year
  Sex: Female
  Weight: 61 kg

DRUGS (4)
  1. CAMPTOSAR [Suspect]
     Indication: RECTAL CANCER
     Dosage: 80 MG/M2, WEEKLY, INTRAVENOUS
     Route: 042
     Dates: start: 20050405
  2. OXALIPLATIN (OXALIPLATIN) [Concomitant]
  3. FLUOROURACIL [Concomitant]
  4. KEVATRIL (GRANISETRON HYDROCHLORIDE) [Concomitant]

REACTIONS (2)
  - CONDITION AGGRAVATED [None]
  - POLYNEUROPATHY [None]
